FAERS Safety Report 5601549-6 (Version None)
Quarter: 2008Q1

REPORT INFORMATION
  Report Type: 
  Country: None (occurrence: None)
  Receive Date: 20080124
  Receipt Date: 20080121
  Transmission Date: 20080703
  Serious: Yes (Life-Threatening, Hospitalization)
  Sender: FDA-Public Use
  Company Number: JP-ASTRAZENECA-2007AP07852

PATIENT
  Age: 70 Year
  Sex: Female

DRUGS (5)
  1. TENORMIN [Suspect]
     Indication: HYPERTENSION
     Route: 048
     Dates: start: 20071127, end: 20071129
  2. RYTHMODAN [Concomitant]
     Route: 048
     Dates: start: 20071113, end: 20071129
  3. DIOVAN [Concomitant]
     Route: 048
     Dates: start: 20071127, end: 20071129
  4. ERISPAN [Concomitant]
     Route: 048
     Dates: start: 20071127, end: 20071129
  5. MUCOSTA [Concomitant]
     Dosage: DOSE UNKNOWN
     Route: 048
     Dates: start: 20070101, end: 20071129

REACTIONS (1)
  - PULMONARY OEDEMA [None]
